FAERS Safety Report 11538978 (Version 4)
Quarter: 2015Q4

REPORT INFORMATION
  Report Type: Report from Study
  Country: BE (occurrence: BE)
  Receive Date: 20150923
  Receipt Date: 20151016
  Transmission Date: 20160304
  Serious: Yes (Hospitalization)
  Sender: FDA-Public Use
  Company Number: BE-ROCHE-1635039

PATIENT
  Age: 56 Year
  Sex: Male

DRUGS (19)
  1. ASAFLOW [Concomitant]
     Active Substance: ASPIRIN
     Route: 048
  2. SOLU-MEDROL [Concomitant]
     Active Substance: METHYLPREDNISOLONE SODIUM SUCCINATE
     Dosage: 40 MG/ML WITH 50 ML SODIUM CHLORIDE (0.9 %).
     Route: 042
  3. CYMBALTA [Concomitant]
     Active Substance: DULOXETINE HYDROCHLORIDE
     Route: 048
     Dates: start: 20150911
  4. SODIUM CHLORIDE. [Concomitant]
     Active Substance: SODIUM CHLORIDE
     Dosage: 3*1000 ON 14/SEP/2015
     Route: 042
  5. APOCARD [Concomitant]
     Active Substance: FLECAINIDE ACETATE
     Route: 048
     Dates: start: 20150911
  6. NOVALGIN [Concomitant]
     Active Substance: METAMIZOLE SODIUM
     Dosage: AMP: 1G/ 2 ML., 1*1 ML
     Route: 040
     Dates: start: 20150912
  7. PARACETAMOL [Concomitant]
     Active Substance: ACETAMINOPHEN
     Dosage: 1 G/100 ML.
     Route: 042
  8. ZOCOR [Concomitant]
     Active Substance: SIMVASTATIN
     Route: 048
     Dates: start: 20150914
  9. COMBODART [Concomitant]
     Active Substance: DUTASTERIDE\TAMSULOSIN
     Dosage: 0.5 - 0.4 MG.
     Route: 048
  10. CHLORAMBUCIL [Suspect]
     Active Substance: CHLORAMBUCIL
     Indication: LYMPHOCYTIC LYMPHOMA
     Dosage: MOST RECENT DOSE PRIOR TO SAE 10/SEP/2015
     Route: 048
     Dates: start: 20150910
  11. LITICAN [Concomitant]
     Active Substance: ALIZAPRIDE HYDROCHLORIDE
     Dosage: 6*50 MG
     Route: 048
     Dates: start: 20150911
  12. PANTOMED (BELGIUM) [Concomitant]
     Route: 048
  13. ANORO ELLIPTA [Concomitant]
     Active Substance: UMECLIDINIUM BROMIDE\VILANTEROL TRIFENATATE
     Dosage: 55/22 MCG, 1 CAPS
     Route: 065
     Dates: start: 20150911
  14. LYSOMUCIL [Concomitant]
     Active Substance: ACETYLCYSTEINE
     Dosage: SACHET
     Route: 048
  15. OBINUTUZUMAB [Suspect]
     Active Substance: OBINUTUZUMAB
     Indication: LYMPHOCYTIC LYMPHOMA
     Dosage: LAST DOSE PRIOR TO EVENT: 11/SEP/2015
     Route: 042
     Dates: start: 20150910
  16. LEXOTAN [Concomitant]
     Active Substance: BROMAZEPAM
     Route: 048
  17. DAFALGAN FORTE [Concomitant]
     Route: 048
  18. ZYRTEC [Concomitant]
     Active Substance: CETIRIZINE HYDROCHLORIDE
     Route: 048
  19. ZYLORIC 300 [Concomitant]
     Route: 048
     Dates: start: 20150911, end: 20150926

REACTIONS (2)
  - Tumour lysis syndrome [Recovered/Resolved]
  - Febrile neutropenia [Recovered/Resolved]

NARRATIVE: CASE EVENT DATE: 20150911
